FAERS Safety Report 6669434-9 (Version None)
Quarter: 2010Q2

REPORT INFORMATION
  Report Type: 
  Country: None (occurrence: None)
  Receive Date: 20100406
  Receipt Date: 20100324
  Transmission Date: 20101027
  Serious: Yes (Other)
  Sender: FDA-Public Use
  Company Number: PHHY2010BR19249

PATIENT
  Age: 46 Year
  Sex: Female
  Weight: 73 kg

DRUGS (1)
  1. CODATEN [Suspect]
     Indication: BACK PAIN
     Dosage: 50 MG, Q8H
     Route: 048
     Dates: start: 20100322, end: 20100324

REACTIONS (8)
  - BLOOD PRESSURE INCREASED [None]
  - FALL [None]
  - FEELING ABNORMAL [None]
  - HYPOAESTHESIA [None]
  - NAUSEA [None]
  - SOMNOLENCE [None]
  - SYNCOPE [None]
  - VOMITING [None]
